FAERS Safety Report 4333089-9 (Version None)
Quarter: 2004Q2

REPORT INFORMATION
  Report Type: 
  Country: None (occurrence: None)
  Receive Date: 20040402
  Receipt Date: 20040326
  Transmission Date: 20050107
  Serious: Yes (Other)
  Sender: FDA-Public Use
  Company Number: FRWYE372028OCT03

PATIENT
  Age: 27 Year
  Sex: Male

DRUGS (5)
  1. KETOPROFEN [Suspect]
     Dosage: 1 DOSE 2X PER 1 DAY , ORAL
     Route: 048
     Dates: start: 20000101
  2. ENBREL [Suspect]
     Indication: ANKYLOSING SPONDYLITIS
     Dosage: 25 MG 2X PR 1 WK , SC
     Route: 058
     Dates: start: 20030501
  3. DI-ANTALVIC (DEXTROPROPOXYPHENE HYDROCHLORIDE/PARACETAMOL) [Concomitant]
  4. TRAMADOL HCL [Concomitant]
  5. OMEPRAZOLE [Concomitant]

REACTIONS (1)
  - GLOMERULONEPHRITIS PROLIFERATIVE [None]
